FAERS Safety Report 9126218 (Version 2)
Quarter: 2013Q3

REPORT INFORMATION
  Report Type: Spontaneous
  Country: CA (occurrence: CA)
  Receive Date: 20130117
  Receipt Date: 20130719
  Transmission Date: 20140515
  Serious: Yes (Other)
  Sender: FDA-Public Use
  Company Number: CA-GLAXOSMITHKLINE-A0999617A

PATIENT
  Age: 38 Year
  Sex: Male

DRUGS (2)
  1. TYKERB [Suspect]
     Indication: BREAST CANCER METASTATIC
     Dosage: 1000MG PER DAY
     Route: 048
     Dates: start: 20111019
  2. XELODA [Concomitant]
     Dosage: 1150MG TWICE PER DAY

REACTIONS (3)
  - Pain [Not Recovered/Not Resolved]
  - Limb operation [Recovered/Resolved]
  - Drug ineffective [Unknown]
